FAERS Safety Report 6074626-6 (Version None)
Quarter: 2009Q1

REPORT INFORMATION
  Report Type: 
  Country: None (occurrence: None)
  Receive Date: 20090212
  Receipt Date: 20090130
  Transmission Date: 20090719
  Serious: Yes (Hospitalization, Other)
  Sender: FDA-Public Use
  Company Number: US-ROCHE-545017

PATIENT
  Sex: Male
  Weight: 61.2 kg

DRUGS (4)
  1. ACCUTANE [Suspect]
     Route: 065
     Dates: start: 19980814, end: 19990301
  2. TYLENOL [Concomitant]
  3. MINOCYCLINE [Concomitant]
     Dates: start: 19980115
  4. TETRACYCLINE [Concomitant]
     Dates: start: 19970917

REACTIONS (13)
  - ANXIETY [None]
  - ARTHRITIS [None]
  - BACK PAIN [None]
  - BEZOAR [None]
  - CROHN'S DISEASE [None]
  - DEPRESSION [None]
  - INFLAMMATORY BOWEL DISEASE [None]
  - OVERGROWTH BACTERIAL [None]
  - PHARYNGITIS [None]
  - PYREXIA [None]
  - SMALL INTESTINAL OBSTRUCTION [None]
  - SMALL INTESTINAL STENOSIS [None]
  - WOUND DEHISCENCE [None]
